FAERS Safety Report 10246495 (Version 1)
Quarter: 2014Q2

REPORT INFORMATION
  Report Type: Spontaneous
  Country: US (occurrence: None)
  Receive Date: 20140617
  Receipt Date: 20140617
  Transmission Date: 20141212
  Serious: Yes (Other)
  Sender: FDA-Public Use
  Company Number: None

PATIENT
  Age: 38 Year
  Sex: Female
  Weight: 136.08 kg

DRUGS (1)
  1. HUMIRA HUMIRA [Suspect]
     Indication: CROHN^S DISEASE
     Dosage: 4 SHOTS   EVERY 2 WEEKS  --

REACTIONS (4)
  - Hypoaesthesia [None]
  - Paraesthesia [None]
  - Nerve injury [None]
  - Neuropathy peripheral [None]
